FAERS Safety Report 7739805-8 (Version None)
Quarter: 2011Q3

REPORT INFORMATION
  Report Type: 
  Country: None (occurrence: None)
  Receive Date: 20110906
  Receipt Date: 20110819
  Transmission Date: 20111222
  Serious: Yes (Other)
  Sender: FDA-Public Use
  Company Number: 2011MA012276

PATIENT
  Age: 75 Year
  Sex: Female

DRUGS (10)
  1. METOCLOPRAMIDE [Concomitant]
  2. ATIVAN [Concomitant]
  3. VITAMIN D [Concomitant]
  4. PROGESTOGENS AND ESTROGENS IN COMBINATION [Concomitant]
  5. ESTRADIOL [Concomitant]
  6. CITALOPRAM HYDROBROMIDE [Concomitant]
  7. DIGOXIN [Suspect]
     Indication: ATRIAL FIBRILLATION
     Dosage: 0.125 MG;
  8. LEVOTHROID [Concomitant]
  9. LOVASTATIN [Concomitant]
  10. WARFARIN SODIUM [Concomitant]

REACTIONS (24)
  - MULTIPLE INJURIES [None]
  - APHAGIA [None]
  - APATHY [None]
  - PSYCHIATRIC SYMPTOM [None]
  - ECONOMIC PROBLEM [None]
  - CLAUSTROPHOBIA [None]
  - DEPRESSED MOOD [None]
  - FEAR [None]
  - DEATH OF RELATIVE [None]
  - HYPOGLYCAEMIA [None]
  - ATRIAL FIBRILLATION [None]
  - PAIN [None]
  - PANIC ATTACK [None]
  - AGORAPHOBIA [None]
  - BEREAVEMENT [None]
  - CARDIAC DISORDER [None]
  - BURNING SENSATION [None]
  - DECREASED APPETITE [None]
  - ANHEDONIA [None]
  - DISTURBANCE IN ATTENTION [None]
  - DIZZINESS [None]
  - FEELING COLD [None]
  - SLEEP DISORDER [None]
  - SOCIAL AVOIDANT BEHAVIOUR [None]
